FAERS Safety Report 7669994-5 (Version None)
Quarter: 2011Q3

REPORT INFORMATION
  Report Type: 
  Country: None (occurrence: None)
  Receive Date: 20110808
  Receipt Date: 20110729
  Transmission Date: 20111222
  Serious: Yes (Other)
  Sender: FDA-Public Use
  Company Number: US-PURDUE-USA-2011-0072877

PATIENT
  Age: 87 Year
  Sex: Female

DRUGS (1)
  1. COLACE CAPSULES 50 MG [Suspect]
     Indication: PRODUCT USED FOR UNKNOWN INDICATION
     Dosage: 2 TABLET, DAILY

REACTIONS (4)
  - HIP FRACTURE [None]
  - FALL [None]
  - GAIT DISTURBANCE [None]
  - BALANCE DISORDER [None]
